FAERS Safety Report 9792128 (Version 2)
Quarter: 2014Q1

REPORT INFORMATION
  Report Type: Spontaneous
  Country: IT (occurrence: IT)
  Receive Date: 20140102
  Receipt Date: 20140128
  Transmission Date: 20141002
  Serious: Yes (Hospitalization)
  Sender: FDA-Public Use
  Company Number: IT-UCBSA-106774

PATIENT
  Age: 3 Year
  Sex: Male
  Weight: 16 kg

DRUGS (1)
  1. KEPPRA [Suspect]
     Indication: PARTIAL SEIZURES
     Dosage: 100 MG/ML; 300 ML BOTTLE + 1 SYRINGE FOR ORAL ADMINISTRATION;USUAL DOSE 150 MG (1.5 ML) BID
     Route: 048
     Dates: start: 20130606, end: 20130606

REACTIONS (4)
  - Arrhythmia [Recovered/Resolved]
  - Heart rate abnormal [Recovered/Resolved]
  - Oxygen saturation decreased [Recovered/Resolved]
  - Accidental overdose [Recovered/Resolved]
